FAERS Safety Report 13558403 (Version 1)
Quarter: 2017Q2

REPORT INFORMATION
  Report Type: Spontaneous
  Country: US (occurrence: US)
  Receive Date: 20170518
  Receipt Date: 20170518
  Transmission Date: 20170830
  Serious: No
  Sender: FDA-Public Use
  Company Number: None

PATIENT
  Age: 63 Year
  Sex: Female
  Weight: 85.5 kg

DRUGS (1)
  1. CIMZIA [Suspect]
     Active Substance: CERTOLIZUMAB PEGOL
     Dosage: ?          OTHER FREQUENCY:MONTHLY;?
     Route: 058

REACTIONS (6)
  - Viral upper respiratory tract infection [None]
  - Haemorrhoids [None]
  - Contusion [None]
  - Cough [None]
  - Immobile [None]
  - Influenza [None]

NARRATIVE: CASE EVENT DATE: 20170516
